FAERS Safety Report 5280223-2 (Version None)
Quarter: 2007Q1

REPORT INFORMATION
  Report Type: 
  Country: None (occurrence: None)
  Receive Date: 20070329
  Receipt Date: 20070319
  Transmission Date: 20070707
  Serious: Yes (Hospitalization)
  Sender: FDA-Public Use
  Company Number: US-AMGEN-US213679

PATIENT
  Sex: Female

DRUGS (19)
  1. PALIFERMIN - BLINDED [Suspect]
     Indication: RADIATION DYSPHAGIA
     Route: 042
     Dates: start: 20070126
  2. PACLITAXEL [Suspect]
     Route: 042
  3. PACLITAXEL [Suspect]
     Route: 042
     Dates: start: 20070226
  4. CARBOPLATIN [Suspect]
     Route: 042
  5. CARBOPLATIN [Suspect]
     Route: 042
     Dates: start: 20070226
  6. RADIATION THERAPY [Suspect]
  7. VITAMIN CAP [Concomitant]
     Route: 048
  8. ASCORBIC ACID [Concomitant]
     Route: 048
  9. OXYCODONE HCL [Concomitant]
     Route: 048
  10. NEXIUM [Concomitant]
     Route: 042
  11. PHENERGAN HCL [Concomitant]
     Route: 042
  12. AUGMENTIN '125' [Concomitant]
     Route: 048
  13. MEGACE [Concomitant]
     Route: 048
  14. COLACE [Concomitant]
     Route: 048
  15. FLUCONAZOLE [Concomitant]
     Route: 048
  16. FLUCONAZOLE [Concomitant]
     Route: 048
  17. PEPCID [Concomitant]
     Route: 048
  18. MORPHINE SULFATE [Concomitant]
     Route: 042
  19. ZOFRAN [Concomitant]
     Route: 042

REACTIONS (1)
  - FEBRILE NEUTROPENIA [None]
